FAERS Safety Report 6491202-1 (Version None)
Quarter: 2009Q4

REPORT INFORMATION
  Report Type: 
  Country: None (occurrence: None)
  Receive Date: 20091211
  Receipt Date: 20091130
  Transmission Date: 20100525
  Serious: Yes (Disabling)
  Sender: FDA-Public Use
  Company Number: PHEH2009US16368

PATIENT
  Sex: Female

DRUGS (8)
  1. RECLAST [Suspect]
     Indication: OSTEOPENIA
     Dosage: 5 MG/100ML
     Route: 042
     Dates: start: 20080221
  2. FLOMAX [Concomitant]
  3. NEXIUM [Concomitant]
  4. ZYRTEC [Concomitant]
  5. BABY ASPIRIN [Concomitant]
  6. BONIVA [Concomitant]
     Indication: OSTEOPENIA
     Dosage: 150 MG/MO
     Dates: start: 20071211, end: 20080101
  7. EVISTA [Concomitant]
     Indication: OSTEOPENIA
     Dosage: 40 MG/DAY
     Route: 048
     Dates: start: 20090929
  8. VICODIN [Concomitant]

REACTIONS (9)
  - DYSPNOEA [None]
  - FALL [None]
  - FIBROMYALGIA [None]
  - GAIT DISTURBANCE [None]
  - MOVEMENT DISORDER [None]
  - MUSCLE CONTRACTIONS INVOLUNTARY [None]
  - MUSCLE SPASMS [None]
  - MUSCLE TIGHTNESS [None]
  - PAIN [None]
